FAERS Safety Report 6305815-0 (Version None)
Quarter: 2009Q3

REPORT INFORMATION
  Report Type: 
  Country: None (occurrence: None)
  Receive Date: 20090806
  Receipt Date: 20080811
  Transmission Date: 20100115
  Serious: Yes (Hospitalization)
  Sender: FDA-Public Use
  Company Number: 1-16509928

PATIENT
  Age: 55 Year
  Sex: Male

DRUGS (1)
  1. BACTRIM [Suspect]
     Indication: WHITE BLOOD CELLS URINE
     Dosage: 80/400 MG, ONCE DAILY, ORAL
     Route: 048
     Dates: start: 20080521, end: 20080530

REACTIONS (1)
  - HYPERKALAEMIA [None]
